FAERS Safety Report 16960306 (Version 1)
Quarter: 2019Q4

REPORT INFORMATION
  Report Type: Spontaneous
  Country: US (occurrence: US)
  Receive Date: 20191025
  Receipt Date: 20191025
  Transmission Date: 20200122
  Serious: No
  Sender: FDA-Public Use
  Company Number: US-PFIZER INC-2019456966

PATIENT
  Age: 68 Year
  Sex: Female
  Weight: 99.79 kg

DRUGS (2)
  1. SKELAXIN [Suspect]
     Active Substance: METAXALONE
     Indication: MUSCLE SPASMS
     Dosage: 1 DF, AS NEEDED
     Route: 048
  2. METAXALONE. [Suspect]
     Active Substance: METAXALONE
     Indication: MUSCLE SPASMS
     Dosage: UNK

REACTIONS (2)
  - Intentional product misuse [Recovering/Resolving]
  - Carpal tunnel syndrome [Unknown]
